FAERS Safety Report 4927915-X (Version None)
Quarter: 2006Q1

REPORT INFORMATION
  Report Type: 
  Country: None (occurrence: None)
  Receive Date: 20060222
  Receipt Date: 20060202
  Transmission Date: 20060701
  Serious: Yes (Hospitalization, Disabling)
  Sender: FDA-Public Use
  Company Number: 414262

PATIENT
  Age: 17 Year
  Sex: Female
  Weight: 45.8 kg

DRUGS (3)
  1. ACCUTANE [Suspect]
     Indication: ACNE
     Dosage: 40 MG DAILY ORAL
     Route: 048
     Dates: start: 19980713, end: 20000622
  2. BACTRIM DS [Concomitant]
  3. DRYSOL (ALUMINUM CHLORIDE) [Concomitant]

REACTIONS (30)
  - ABDOMINAL PAIN [None]
  - ANAEMIA [None]
  - ANKYLOSING SPONDYLITIS [None]
  - ANXIETY [None]
  - ARTHRALGIA [None]
  - BACK PAIN [None]
  - CHEILITIS [None]
  - CHEST DISCOMFORT [None]
  - CHEST PAIN [None]
  - COLITIS ULCERATIVE [None]
  - DEPRESSION [None]
  - DIZZINESS [None]
  - DRY SKIN [None]
  - ENTHESOPATHY [None]
  - EYE IRRITATION [None]
  - FATIGUE [None]
  - GASTROOESOPHAGEAL REFLUX DISEASE [None]
  - JOINT SPRAIN [None]
  - MULTI-ORGAN DISORDER [None]
  - MUSCLE SPASMS [None]
  - NECK PAIN [None]
  - OSTEOARTHRITIS [None]
  - PAIN IN EXTREMITY [None]
  - PARAESTHESIA [None]
  - PERIARTHRITIS [None]
  - POUCHITIS [None]
  - RADICULOPATHY [None]
  - ROAD TRAFFIC ACCIDENT [None]
  - SHOULDER PAIN [None]
  - SYNOVITIS [None]
